FAERS Safety Report 24260210 (Version 1)
Quarter: 2024Q3

REPORT INFORMATION
  Report Type: Report from Study
  Country: US (occurrence: US)
  Receive Date: 20240828
  Receipt Date: 20240828
  Transmission Date: 20241016
  Serious: Yes (Death, Other)
  Sender: APELLIS PHARMACEUTICALS
  Company Number: US-APELLIS-2024-APL-0000442

PATIENT

DRUGS (2)
  1. PEGCETACOPLAN [Suspect]
     Active Substance: PEGCETACOPLAN
     Indication: Dry age-related macular degeneration
     Dosage: EVERY 56 DAYS
     Route: 031
     Dates: end: 20230525
  2. ELIQUIS [Concomitant]
     Active Substance: APIXABAN
     Indication: Hyperlipidaemia

REACTIONS (2)
  - Death [Fatal]
  - Choroidal neovascularisation [Unknown]

NARRATIVE: CASE EVENT DATE: 20240305
